FAERS Safety Report 5898413-4 (Version None)
Quarter: 2008Q3

REPORT INFORMATION
  Report Type: 
  Country: None (occurrence: None)
  Receive Date: 20080925
  Receipt Date: 20071022
  Transmission Date: 20090109
  Serious: No
  Sender: FDA-Public Use
  Company Number: A0689875A

PATIENT
  Sex: Female

DRUGS (2)
  1. WELLBUTRIN XL [Suspect]
     Indication: DRUG USE FOR UNKNOWN INDICATION
     Route: 048
  2. UNKNOWN [Concomitant]

REACTIONS (5)
  - BETA-N-ACETYL-D-GLUCOSAMINIDASE INCREASED [None]
  - DRY MOUTH [None]
  - LIBIDO DECREASED [None]
  - THERAPEUTIC RESPONSE DECREASED [None]
  - THIRST [None]
